FAERS Safety Report 12795881 (Version 1)
Quarter: 2016Q3

REPORT INFORMATION
  Report Type: Report from Study
  Country: US (occurrence: US)
  Receive Date: 20160929
  Receipt Date: 20160929
  Transmission Date: 20161109
  Serious: Yes (Other)
  Sender: FDA-Public Use
  Company Number: US-AMGEN-USASL2016132751

PATIENT

DRUGS (1)
  1. KYPROLIS [Suspect]
     Active Substance: CARFILZOMIB
     Indication: PRODUCT USED FOR UNKNOWN INDICATION
     Dosage: UNK
     Route: 065

REACTIONS (25)
  - Chondropathy [Unknown]
  - Hypotension [Unknown]
  - Hypocalcaemia [Unknown]
  - Neuropathy peripheral [Unknown]
  - Iron metabolism disorder [Unknown]
  - Magnesium metabolism disorder [Unknown]
  - Chronic kidney disease [Unknown]
  - Acute kidney injury [Unknown]
  - Bone disorder [Unknown]
  - Dysphagia [Unknown]
  - Hypercalcaemia [Unknown]
  - Bronchitis [Unknown]
  - Coagulopathy [Unknown]
  - Dyspnoea [Unknown]
  - Thrombocytopenia [Unknown]
  - Anaemia [Unknown]
  - Dysphonia [Unknown]
  - Rhinitis allergic [Unknown]
  - Diarrhoea [Unknown]
  - Sialoadenitis [Unknown]
  - Nephrogenic anaemia [Unknown]
  - Respiratory failure [Unknown]
  - Cough [Unknown]
  - Insomnia [Unknown]
  - Essential hypertension [Unknown]

NARRATIVE: CASE EVENT DATE: 20130702
